FAERS Safety Report 10308220 (Version 12)
Quarter: 2019Q3

REPORT INFORMATION
  Report Type: Report from Study
  Country: US (occurrence: US)
  Receive Date: 20140716
  Receipt Date: 20190913
  Transmission Date: 20191004
  Serious: Yes (Hospitalization, Other)
  Sender: FDA-Public Use
  Company Number: US-SA-2014SA072881

PATIENT
  Age: 57 Year
  Sex: Female

DRUGS (5)
  1. PREDNISONE. [Concomitant]
     Active Substance: PREDNISONE
     Dosage: UNK
  2. LEVOTHYROXINE. [Concomitant]
     Active Substance: LEVOTHYROXINE
  3. TERIFLUNOMIDE. [Suspect]
     Active Substance: TERIFLUNOMIDE
     Dosage: 14 MG,QD
     Route: 048
     Dates: start: 2015
  4. TERIFLUNOMIDE. [Suspect]
     Active Substance: TERIFLUNOMIDE
     Indication: MULTIPLE SCLEROSIS
     Dosage: 14 MG,QD
     Route: 048
     Dates: start: 20140515
  5. COUMADIN [Suspect]
     Active Substance: WARFARIN SODIUM
     Dosage: UNK UNK,UNK
     Route: 065

REACTIONS (21)
  - Multiple sclerosis relapse [Unknown]
  - Social anxiety disorder [Unknown]
  - Nasopharyngitis [Unknown]
  - Gait disturbance [Not Recovered/Not Resolved]
  - Diplopia [Recovered/Resolved]
  - Condition aggravated [Unknown]
  - Paraesthesia [Not Recovered/Not Resolved]
  - Alopecia [Unknown]
  - International normalised ratio increased [Unknown]
  - Urinary incontinence [Unknown]
  - Hypoaesthesia [Not Recovered/Not Resolved]
  - Sepsis [Recovered/Resolved]
  - Peripheral coldness [Unknown]
  - Memory impairment [Not Recovered/Not Resolved]
  - Initial insomnia [Not Recovered/Not Resolved]
  - Hospitalisation [Unknown]
  - Fatigue [Unknown]
  - Aphasia [Unknown]
  - Contusion [Unknown]
  - Dizziness [Unknown]
  - Burning sensation [Not Recovered/Not Resolved]

NARRATIVE: CASE EVENT DATE: 201405
